FAERS Safety Report 23287268 (Version 1)
Quarter: 2023Q4

REPORT INFORMATION
  Report Type: Spontaneous
  Country: VN (occurrence: None)
  Receive Date: 20231212
  Receipt Date: 20231212
  Transmission Date: 20240110
  Serious: Yes (Hospitalization)
  Sender: FDA-Public Use
  Company Number: 2023A279871

PATIENT
  Sex: Male

DRUGS (1)
  1. IMFINZI [Suspect]
     Active Substance: DURVALUMAB
     Indication: Non-small cell lung cancer stage IIIA
     Dosage: 10.0MG/KG UNKNOWN

REACTIONS (4)
  - Fatigue [Unknown]
  - Pyrexia [Unknown]
  - Oxygen saturation decreased [Unknown]
  - Hypoglycaemia [Unknown]
